FAERS Safety Report 8970080 (Version 1)
Quarter: 2012Q4

REPORT INFORMATION
  Report Type: 
  Country: CN (occurrence: CN)
  Receive Date: 20121217
  Receipt Date: 20121217
  Transmission Date: 20130627
  Serious: Yes (Other)
  Sender: FDA-Public Use
  Company Number: PHHY2012CN109549

PATIENT
  Age: 57 Year
  Sex: Male
  Weight: 63 kg

DRUGS (2)
  1. TEGRETOL [Suspect]
     Indication: TRIGEMINAL NEURALGIA
     Dosage: 1 DF, BID
     Route: 048
     Dates: start: 20110518
  2. TEGRETOL [Suspect]
     Dosage: 0.1 g at daylight/0.2 g in the evening twice daily
     Route: 048
     Dates: start: 20110521, end: 20110523

REACTIONS (7)
  - Mouth ulceration [Recovered/Resolved]
  - Pharyngeal oedema [Recovered/Resolved]
  - Oropharyngeal pain [Recovered/Resolved]
  - Oral mucosa erosion [Recovered/Resolved]
  - Eye pain [Recovered/Resolved]
  - Urticaria [Unknown]
  - Rash [Unknown]
